FAERS Safety Report 22068618 (Version 2)
Quarter: 2023Q1

REPORT INFORMATION
  Report Type: Report from Study
  Country: CA (occurrence: CA)
  Receive Date: 20230307
  Receipt Date: 20230321
  Transmission Date: 20230418
  Serious: Yes (Death, Other)
  Sender: FDA-Public Use
  Company Number: CA-BAYER-2023A028931

PATIENT
  Sex: Female

DRUGS (11)
  1. EYLEA [Suspect]
     Active Substance: AFLIBERCEPT
     Indication: Choroidal neovascularisation
     Dosage: UNK SOLUTION FOR INJECTION 40 MG/ML
     Dates: start: 20200527, end: 20200527
  2. EYLEA [Suspect]
     Active Substance: AFLIBERCEPT
     Dosage: UNK SOLUTION FOR INJECTION 40 MG/ML
     Dates: start: 20200818, end: 20200818
  3. EYLEA [Suspect]
     Active Substance: AFLIBERCEPT
     Dosage: UNK SOLUTION FOR INJECTION 40 MG/ML
     Dates: start: 20201222, end: 20201222
  4. EYLEA [Suspect]
     Active Substance: AFLIBERCEPT
     Dosage: UNK SOLUTION FOR INJECTION 40 MG/ML
     Dates: start: 20210323, end: 20210323
  5. EYLEA [Suspect]
     Active Substance: AFLIBERCEPT
     Dosage: UNK SOLUTION FOR INJECTION 40 MG/ML
     Dates: start: 20210622, end: 20210622
  6. EYLEA [Suspect]
     Active Substance: AFLIBERCEPT
     Dosage: UNK SOLUTION FOR INJECTION 40 MG/ML
     Dates: start: 20210921, end: 20210921
  7. EYLEA [Suspect]
     Active Substance: AFLIBERCEPT
     Dosage: UNK SOLUTION FOR INJECTION 40 MG/ML
     Dates: start: 20211214, end: 20211214
  8. EYLEA [Suspect]
     Active Substance: AFLIBERCEPT
     Dosage: UNK SOLUTION FOR INJECTION 40 MG/ML
     Dates: start: 20220316, end: 20220316
  9. EYLEA [Suspect]
     Active Substance: AFLIBERCEPT
     Dosage: UNK SOLUTION FOR INJECTION 40 MG/ML
     Dates: start: 20220531, end: 20220531
  10. EYLEA [Suspect]
     Active Substance: AFLIBERCEPT
     Dosage: UNK SOLUTION FOR INJECTION 40 MG/ML
     Dates: start: 20220823, end: 20220823
  11. EYLEA [Suspect]
     Active Substance: AFLIBERCEPT
     Dosage: UNK SOLUTION FOR INJECTION 40 MG/ML
     Dates: start: 20221220, end: 20221220

REACTIONS (4)
  - Death [Fatal]
  - Intraocular pressure decreased [Recovered/Resolved]
  - Blindness unilateral [Recovering/Resolving]
  - Product use issue [Unknown]

NARRATIVE: CASE EVENT DATE: 20220316
